FAERS Safety Report 5747530-8 (Version None)
Quarter: 2008Q2

REPORT INFORMATION
  Report Type: 
  Country: None (occurrence: None)
  Receive Date: 20080523
  Receipt Date: 20080509
  Transmission Date: 20081010
  Serious: Yes (Other)
  Sender: FDA-Public Use
  Company Number: US-BAYER-200811392NA

PATIENT
  Age: 58 Year
  Sex: Female
  Weight: 69 kg

DRUGS (12)
  1. BETASERON [Suspect]
     Indication: RELAPSING-REMITTING MULTIPLE SCLEROSIS
     Dosage: TOTAL DAILY DOSE: 8 MIU
     Route: 058
     Dates: start: 20070912
  2. DITROPAN EX [Concomitant]
     Indication: BLADDER DISORDER
     Dosage: TOTAL DAILY DOSE: 15 MG
     Route: 048
  3. BACLOFEN [Concomitant]
     Indication: MUSCLE SPASTICITY
     Route: 048
  4. PRAVASTATIN [Concomitant]
     Indication: BLOOD CHOLESTEROL ABNORMAL
     Dosage: TOTAL DAILY DOSE: 80 MG
     Route: 048
  5. PROTONIX [Concomitant]
     Indication: GASTRIC DISORDER
     Dosage: TOTAL DAILY DOSE: 40 MG
  6. ZIAC [Concomitant]
     Indication: BLOOD PRESSURE ABNORMAL
  7. PROVIGIL [Concomitant]
     Indication: FATIGUE
     Dosage: TOTAL DAILY DOSE: 100 MG
  8. CLARIDIN [Concomitant]
  9. ASPIRIN [Concomitant]
  10. VITAMIN B COMPLEX CAP [Concomitant]
  11. ADVIL [Concomitant]
  12. FISH OIL [Concomitant]

REACTIONS (9)
  - ALOPECIA [None]
  - ASTHENIA [None]
  - BLOOD GLUCOSE INCREASED [None]
  - MULTIPLE SCLEROSIS [None]
  - MULTIPLE SCLEROSIS RELAPSE [None]
  - NERVOUSNESS [None]
  - OESOPHAGEAL CANDIDIASIS [None]
  - ORAL CANDIDIASIS [None]
  - VISUAL DISTURBANCE [None]
